FAERS Safety Report 5792149-6 (Version None)
Quarter: 2008Q2

REPORT INFORMATION
  Report Type: 
  Country: None (occurrence: None)
  Receive Date: 20080625
  Receipt Date: 20080306
  Transmission Date: 20081010
  Serious: No
  Sender: FDA-Public Use
  Company Number: US-WYE-H03029708

PATIENT
  Age: 72 Year
  Sex: Male

DRUGS (2)
  1. TORISEL [Suspect]
     Indication: RENAL CELL CARCINOMA
     Dosage: 25 MG 1X PER 1 WK, INTRAVENOUS; 20 MG 1X PER 1 WK, INTRAVENOUS
     Route: 042
     Dates: start: 20080201, end: 20080101
  2. TORISEL [Suspect]
     Indication: RENAL CELL CARCINOMA
     Dosage: 25 MG 1X PER 1 WK, INTRAVENOUS; 20 MG 1X PER 1 WK, INTRAVENOUS
     Route: 042
     Dates: start: 20080101

REACTIONS (1)
  - SKIN DISCOLOURATION [None]
